FAERS Safety Report 12545688 (Version 1)
Quarter: 2016Q3

REPORT INFORMATION
  Report Type: Spontaneous
  Country: CN (occurrence: CN)
  Receive Date: 20160711
  Receipt Date: 20160711
  Transmission Date: 20161109
  Serious: Yes (Hospitalization)
  Sender: FDA-Public Use
  Company Number: CN-PFIZER INC-2016337209

PATIENT
  Age: 2 Day
  Sex: Male
  Weight: 1.45 kg

DRUGS (1)
  1. CEFOPERAZONE SODIUM [Suspect]
     Active Substance: CEFOPERAZONE SODIUM
     Indication: NEONATAL PNEUMONIA
     Dosage: 0.073 G, 2X/DAY
     Route: 041
     Dates: start: 20151204, end: 20151209

REACTIONS (1)
  - Neutrophil count decreased [Recovered/Resolved]

NARRATIVE: CASE EVENT DATE: 20151206
